FAERS Safety Report 18325813 (Version 1)
Quarter: 2020Q3

REPORT INFORMATION
  Report Type: Report from Study
  Country: US (occurrence: US)
  Receive Date: 20200929
  Receipt Date: 20200929
  Transmission Date: 20201103
  Serious: Yes (Other)
  Sender: FDA-Public Use
  Company Number: US-TAKEDA-2020TUS040524

PATIENT
  Sex: Female

DRUGS (1)
  1. VORTIOXETINE. [Suspect]
     Active Substance: VORTIOXETINE
     Indication: PRODUCT USED FOR UNKNOWN INDICATION
     Dosage: UNK
     Route: 065

REACTIONS (9)
  - Increased tendency to bruise [Unknown]
  - Dizziness [Unknown]
  - Intestinal resection [Unknown]
  - Gait disturbance [Unknown]
  - Diarrhoea [Unknown]
  - Mania [Unknown]
  - Anxiety [Unknown]
  - Abdominal distension [Unknown]
  - Back pain [Unknown]
